FAERS Safety Report 20488378 (Version 1)
Quarter: 2022Q1

REPORT INFORMATION
  Report Type: Spontaneous
  Country: RS (occurrence: RS)
  Receive Date: 20220218
  Receipt Date: 20220218
  Transmission Date: 20220423
  Serious: Yes (Hospitalization, Other)
  Sender: FDA-Public Use
  Company Number: RS-SUN PHARMACEUTICAL INDUSTRIES LTD-2022RR-327094

PATIENT
  Age: 55 Year
  Sex: Male

DRUGS (1)
  1. OLANZAPINE [Suspect]
     Active Substance: OLANZAPINE
     Indication: Product used for unknown indication
     Dosage: 350 MILLIGRAM, ONE DOSE
     Route: 048

REACTIONS (3)
  - Overdose [Recovered/Resolved]
  - Muscle disorder [Recovered/Resolved]
  - Agranulocytosis [Recovered/Resolved]
